FAERS Safety Report 8248887-9 (Version None)
Quarter: 2012Q2

REPORT INFORMATION
  Report Type: 
  Country: None (occurrence: None)
  Receive Date: 20120401
  Receipt Date: 20120320
  Transmission Date: 20120825
  Serious: Yes (Hospitalization, Other)
  Sender: FDA-Public Use
  Company Number: US-ELI_LILLY_AND_COMPANY-US201203006889

PATIENT
  Age: 56 Year
  Sex: Female

DRUGS (12)
  1. ATROPINE W/DIPHENOXYLATE [Concomitant]
     Dosage: UNK, UNKNOWN
  2. CYMBALTA [Suspect]
     Indication: DEPRESSION
     Dosage: 60 MG, QD
  3. MS CONTIN [Concomitant]
     Dosage: UNK, BID
  4. SPIRIVA [Concomitant]
     Dosage: UNK, UNKNOWN
  5. PREDNISONE [Concomitant]
     Dosage: UNK, UNKNOWN
  6. ZYFLO [Concomitant]
     Dosage: UNK, UNKNOWN
  7. HUMULIN R [Concomitant]
     Dosage: UNK, UNKNOWN
  8. OXYCODONE HCL [Concomitant]
     Dosage: UNK, PRN
  9. ADVAIR DISKUS 100/50 [Concomitant]
     Dosage: UNK, UNKNOWN
  10. LYRICA [Concomitant]
     Dosage: UNK, UNKNOWN
  11. LEVEMIR [Concomitant]
     Dosage: UNK, UNKNOWN
  12. PANTOPRAZOLE [Concomitant]
     Dosage: UNK, UNKNOWN

REACTIONS (8)
  - BLISTER [None]
  - DIZZINESS [None]
  - ANKLE FRACTURE [None]
  - PSORIASIS [None]
  - LOSS OF CONSCIOUSNESS [None]
  - EXFOLIATIVE RASH [None]
  - HEAD INJURY [None]
  - SKIN ULCER [None]
